FAERS Safety Report 8997134 (Version 1)
Quarter: 2012Q4

REPORT INFORMATION
  Report Type: Spontaneous
  Country: AN (occurrence: None)
  Receive Date: 20121221
  Receipt Date: 20121221
  Transmission Date: 20130627
  Serious: Yes (Death)
  Sender: FDA-Public Use
  Company Number: 1531211

PATIENT
  Age: 23 Year
  Sex: Male

DRUGS (18)
  1. NORADRENALINE TARTRATE [Suspect]
     Indication: INTRACRANIAL PRESSURE MONITORING
  2. NORADRENALINE TARTRATE [Suspect]
     Indication: INTRACRANIAL PRESSURE MONITORING
  3. NORADRENALINE TARTRATE [Suspect]
     Indication: INTRACRANIAL PRESSURE MONITORING
     Dosage: 0.3 MCG/KG/HR
  4. NORADRENALINE TARTRATE [Suspect]
     Indication: INTRACRANIAL PRESSURE MONITORING
     Dosage: 0.3 MCG/KG/HR
  5. PROPOFOL [Suspect]
     Indication: SEDATION
  6. PROPOFOL [Suspect]
     Indication: SEDATION
  7. PROPOFOL [Suspect]
  8. PROPOFOL [Suspect]
     Indication: SEDATION
     Route: 041
  9. PROPOFOL [Suspect]
     Indication: SEDATION
     Route: 041
  10. PROPOFOL [Suspect]
     Route: 041
  11. PROPOFOL [Suspect]
     Indication: SEDATION
  12. PROPOFOL [Suspect]
     Indication: SEDATION
  13. PROPOFOL [Suspect]
  14. MIDAZOLAM [Concomitant]
  15. MORPHINE [Concomitant]
  16. HYPERTONIC SALINE SOLUTION [Concomitant]
  17. MANNITOL [Concomitant]
  18. ROCURONIUM [Concomitant]

REACTIONS (15)
  - Shock [None]
  - Propofol infusion syndrome [None]
  - Intracranial pressure increased [None]
  - Brain oedema [None]
  - Blood sodium increased [None]
  - Acidosis hyperchloraemic [None]
  - Phlebitis [None]
  - Lactic acidosis [None]
  - Hyperkalaemia [None]
  - Hypertriglyceridaemia [None]
  - Haemodialysis [None]
  - Circulatory collapse [None]
  - Renal failure [None]
  - Cardiac failure [None]
  - Electrocardiogram abnormal [None]
